FAERS Safety Report 10169686 (Version 1)
Quarter: 2014Q2

REPORT INFORMATION
  Report Type: Spontaneous
  Country: KR (occurrence: KR)
  Receive Date: 20140513
  Receipt Date: 20140513
  Transmission Date: 20141212
  Serious: Yes (Other)
  Sender: FDA-Public Use
  Company Number: KR-PFIZER INC-2014128711

PATIENT
  Age: 58 Year
  Sex: Male

DRUGS (1)
  1. CHAMPIX [Suspect]
     Dosage: UNK
     Route: 048
     Dates: start: 201404

REACTIONS (1)
  - Thyroid cyst [Unknown]
